FAERS Safety Report 6107245-3 (Version None)
Quarter: 2009Q1

REPORT INFORMATION
  Report Type: 
  Country: None (occurrence: None)
  Receive Date: 20090305
  Receipt Date: 20090219
  Transmission Date: 20090719
  Serious: Yes (Hospitalization)
  Sender: FDA-Public Use
  Company Number: MEDI-0008003

PATIENT
  Sex: Female

DRUGS (1)
  1. AMIFOSTINE FOR INJECTION (AMIFOSTINE) [Suspect]
     Dates: end: 20090212

REACTIONS (3)
  - DEHYDRATION [None]
  - RASH MACULAR [None]
  - URTICARIA [None]
